FAERS Safety Report 20610358 (Version 1)
Quarter: 2022Q1

REPORT INFORMATION
  Report Type: Spontaneous
  Country: FR (occurrence: FR)
  Receive Date: 20220318
  Receipt Date: 20220318
  Transmission Date: 20220424
  Serious: Yes (Hospitalization)
  Sender: FDA-Public Use
  Company Number: None

PATIENT
  Age: 26 Year
  Sex: Female

DRUGS (1)
  1. ACETAMINOPHEN [Suspect]
     Active Substance: ACETAMINOPHEN
     Indication: Toxicity to various agents
     Dosage: UNK (9 CP OF 1 G IN ONE SOCKET, 1 FP)
     Route: 048
     Dates: start: 20210316, end: 20210316

REACTIONS (7)
  - Prothrombin time shortened [Recovered/Resolved]
  - Chest pain [Recovered/Resolved]
  - Coagulation factor VII level decreased [Recovered/Resolved]
  - Coagulation factor X level decreased [Recovered/Resolved]
  - Abdominal pain [Recovered/Resolved]
  - Nausea [Recovered/Resolved]
  - Vomiting [Recovered/Resolved]

NARRATIVE: CASE EVENT DATE: 20210316
